FAERS Safety Report 8080912-0 (Version None)
Quarter: 2012Q1

REPORT INFORMATION
  Report Type: 
  Country: None (occurrence: None)
  Receive Date: 20120130
  Receipt Date: 20120120
  Transmission Date: 20120608
  Serious: Yes (Hospitalization)
  Sender: FDA-Public Use
  Company Number: US-JNJFOC-20120111791

PATIENT

DRUGS (14)
  1. ONDANSETRON [Concomitant]
     Indication: PROPHYLAXIS OF NAUSEA AND VOMITING
     Route: 065
  2. DEXAMETHASONE [Concomitant]
     Indication: PROPHYLAXIS OF NAUSEA AND VOMITING
     Route: 065
  3. CEFAZOLIN [Concomitant]
     Indication: ANTIBIOTIC PROPHYLAXIS
     Route: 065
  4. POLYVINYL ALCOHOL [Suspect]
     Indication: OESOPHAGEAL CANCER METASTATIC
     Route: 013
  5. LIDOCAINE [Concomitant]
     Route: 065
  6. CISPLATIN [Suspect]
     Indication: OESOPHAGEAL CANCER METASTATIC
     Route: 013
  7. LIDOCAINE [Concomitant]
     Indication: SEDATION
     Route: 013
  8. METRONIDAZOLE [Concomitant]
     Indication: ANTIBIOTIC PROPHYLAXIS
     Route: 065
  9. MIDAZOLAM [Concomitant]
     Indication: SEDATION
     Route: 042
  10. DOXORUBICIN HCL [Suspect]
     Indication: OESOPHAGEAL CANCER METASTATIC
     Route: 013
  11. ETHIODIZED OIL [Suspect]
     Indication: OESOPHAGEAL CANCER METASTATIC
     Route: 013
  12. FENTANYL [Concomitant]
     Indication: SEDATION
     Route: 042
  13. MITOMYCIN [Suspect]
     Indication: OESOPHAGEAL CANCER METASTATIC
     Route: 013
  14. DIPHENHYDRAMINE HCL [Concomitant]
     Indication: PROPHYLAXIS OF NAUSEA AND VOMITING
     Route: 065

REACTIONS (4)
  - DEHYDRATION [None]
  - OFF LABEL USE [None]
  - INCORRECT ROUTE OF DRUG ADMINISTRATION [None]
  - CONFUSIONAL STATE [None]
